FAERS Safety Report 20545230 (Version 1)
Quarter: 2022Q1

REPORT INFORMATION
  Report Type: Spontaneous
  Country: GB (occurrence: GB)
  Receive Date: 20220303
  Receipt Date: 20220303
  Transmission Date: 20220424
  Serious: Yes (Other)
  Sender: FDA-Public Use
  Company Number: GB-CELLTRION INC.-2022GB002460

PATIENT

DRUGS (1)
  1. INFLIXIMAB [Suspect]
     Active Substance: INFLIXIMAB
     Indication: Crohn^s disease
     Dosage: 120 MILLIGRAM, 2 WEEKLY
     Route: 058

REACTIONS (6)
  - Crohn^s disease [Unknown]
  - Depressed mood [Unknown]
  - Nausea [Unknown]
  - Abdominal pain [Unknown]
  - Injection site pain [Unknown]
  - Treatment delayed [Unknown]
